FAERS Safety Report 7710437-0 (Version None)
Quarter: 2011Q3

REPORT INFORMATION
  Report Type: 
  Country: None (occurrence: None)
  Receive Date: 20110825
  Receipt Date: 20110811
  Transmission Date: 20111222
  Serious: Yes (Hospitalization)
  Sender: FDA-Public Use
  Company Number: US-ELI_LILLY_AND_COMPANY-US201101007082

PATIENT
  Sex: Female
  Weight: 48.073 kg

DRUGS (9)
  1. INDERAL [Concomitant]
     Indication: RESTLESSNESS
     Dates: start: 20101126, end: 20110125
  2. OLANZAPINE [Suspect]
     Dosage: 15 MG, DAILY (1/D)
  3. OLANZAPINE [Suspect]
     Dosage: 17.5 MG, DAILY (1/D)
     Route: 048
     Dates: start: 20110125
  4. OLANZAPINE [Suspect]
     Indication: BIPOLAR I DISORDER
     Dosage: 5 MG, DAILY (1/D)
     Dates: start: 20101206
  5. PROTONIX [Concomitant]
     Indication: OESOPHAGITIS
     Dates: start: 20100801
  6. LORAZEPAM [Concomitant]
     Indication: AGITATION
     Dosage: UNK UNK, PRN
     Dates: start: 20101207
  7. OLANZAPINE [Suspect]
     Dosage: 20 MG, QD
     Route: 048
  8. FLUTICASONE PROPIONATE [Concomitant]
     Indication: OESOPHAGITIS
     Dates: start: 20100801
  9. DEXMETHYLPHENIDATE HCL [Concomitant]
     Indication: ATTENTION DEFICIT/HYPERACTIVITY DISORDER
     Dosage: 15 MG, EACH MORNING
     Dates: start: 20100801

REACTIONS (1)
  - SUICIDAL IDEATION [None]
